FAERS Safety Report 8335197-4 (Version None)
Quarter: 2012Q2

REPORT INFORMATION
  Report Type: 
  Country: None (occurrence: None)
  Receive Date: 20120503
  Receipt Date: 20120425
  Transmission Date: 20120825
  Serious: Yes (Hospitalization, Other)
  Sender: FDA-Public Use
  Company Number: KR-JNJFOC-20081206263

PATIENT
  Sex: Female
  Weight: 64 kg

DRUGS (48)
  1. GOLIMUMAB [Suspect]
     Route: 058
     Dates: start: 20080306
  2. GOLIMUMAB [Suspect]
     Route: 058
     Dates: start: 20080212
  3. GOLIMUMAB [Suspect]
     Route: 058
     Dates: start: 20070628
  4. COUGH TAB [Concomitant]
     Route: 048
     Dates: start: 20081126, end: 20081211
  5. MACPERAN [Concomitant]
     Route: 048
     Dates: start: 20080213
  6. ROSIGEN [Concomitant]
     Route: 061
     Dates: start: 20080626
  7. GOLIMUMAB [Suspect]
     Route: 058
     Dates: start: 20090108
  8. GOLIMUMAB [Suspect]
     Route: 058
     Dates: start: 20081216
  9. GOLIMUMAB [Suspect]
     Route: 058
     Dates: start: 20081113
  10. GOLIMUMAB [Suspect]
     Route: 058
     Dates: start: 20080917
  11. GOLIMUMAB [Suspect]
     Route: 058
     Dates: start: 20080821
  12. METHOTREXATE [Suspect]
     Route: 048
     Dates: start: 20070409, end: 20070416
  13. GOLIMUMAB [Suspect]
     Route: 058
     Dates: start: 20071213
  14. GOLIMUMAB [Suspect]
     Route: 058
     Dates: start: 20071018
  15. GOLIMUMAB [Suspect]
     Route: 058
     Dates: start: 20070920
  16. GOLIMUMAB [Suspect]
     Route: 058
     Dates: start: 20080626
  17. FOLIN [Concomitant]
     Route: 048
     Dates: start: 20070629
  18. METHOTREXATE [Suspect]
     Route: 048
     Dates: start: 20070507, end: 20070507
  19. GOLIMUMAB [Suspect]
     Route: 058
     Dates: start: 20070726
  20. GOLIMUMAB [Suspect]
     Route: 058
     Dates: start: 20070503
  21. GOLIMUMAB [Suspect]
     Route: 058
     Dates: start: 20081016
  22. GOLIMUMAB [Suspect]
     Route: 058
     Dates: start: 20080523
  23. METHOTREXATE [Suspect]
     Route: 048
     Dates: start: 20070423, end: 20070430
  24. NICETILE [Concomitant]
     Route: 048
     Dates: start: 20080524
  25. METHOTREXATE [Concomitant]
     Route: 048
     Dates: start: 20080908, end: 20080915
  26. RETONAZE [Concomitant]
     Route: 048
     Dates: start: 20081126, end: 20081211
  27. FAMOTIDINE [Concomitant]
     Route: 048
     Dates: start: 20081126, end: 20081211
  28. ROSIDEN [Concomitant]
     Route: 061
     Dates: start: 20080626
  29. ULTRACET [Concomitant]
     Route: 048
     Dates: start: 20080626, end: 20081215
  30. GOLIMUMAB [Suspect]
     Route: 058
     Dates: start: 20080403
  31. METHOTREXATE [Suspect]
     Route: 048
     Dates: start: 20070604, end: 20071015
  32. METHOTREXATE [Suspect]
     Route: 048
     Dates: start: 20070521, end: 20070528
  33. METHOTREXATE [Concomitant]
     Route: 048
     Dates: start: 20080922, end: 20081216
  34. STILLIN [Concomitant]
     Route: 048
     Dates: start: 20080213
  35. CELEBREX [Concomitant]
     Route: 048
     Dates: start: 20080213
  36. GOLIMUMAB [Suspect]
     Route: 058
     Dates: start: 20080109
  37. GOLIMUMAB [Suspect]
     Route: 058
     Dates: start: 20080502
  38. GOLIMUMAB [Suspect]
     Route: 058
     Dates: start: 20080724
  39. METHOTREXATE [Concomitant]
     Route: 048
     Dates: start: 20081217
  40. METHOTREXATE [Concomitant]
     Route: 048
     Dates: start: 20080721, end: 20080901
  41. METHOTREXATE [Concomitant]
     Route: 048
     Dates: start: 20080630, end: 20080704
  42. GOLIMUMAB [Suspect]
     Indication: RHEUMATOID ARTHRITIS
     Route: 058
     Dates: start: 20070405
  43. GOLIMUMAB [Suspect]
     Route: 058
     Dates: start: 20071115
  44. GOLIMUMAB [Suspect]
     Route: 058
     Dates: start: 20070531
  45. GOLIMUMAB [Suspect]
     Route: 058
     Dates: start: 20070823
  46. METHOTREXATE [Suspect]
     Indication: RHEUMATOID ARTHRITIS
     Route: 048
     Dates: start: 20071022, end: 20080623
  47. CLAMONEX [Concomitant]
     Route: 048
     Dates: start: 20081126, end: 20081211
  48. PREDNISOLONE [Concomitant]
     Route: 048
     Dates: start: 20080524

REACTIONS (1)
  - BREAST CANCER [None]
